FAERS Safety Report 4713574-8 (Version None)
Quarter: 2005Q3

REPORT INFORMATION
  Report Type: 
  Country: None (occurrence: None)
  Receive Date: 20050713
  Receipt Date: 20050705
  Transmission Date: 20060218
  Serious: Yes (Hospitalization)
  Sender: FDA-Public Use
  Company Number: 200511420DE

PATIENT
  Age: 68 Year
  Sex: Female

DRUGS (6)
  1. ARAVA [Suspect]
     Route: 048
     Dates: start: 20010401
  2. METHOTREXATE [Concomitant]
  3. RESOCHIN [Concomitant]
     Route: 048
  4. AZATHIOPRINE [Concomitant]
     Dates: end: 20040101
  5. DECORTIN [Concomitant]
  6. VERAPAMIL [Concomitant]

REACTIONS (5)
  - BACK PAIN [None]
  - GAIT DISTURBANCE [None]
  - ILL-DEFINED DISORDER [None]
  - NEUROLOGICAL EXAMINATION ABNORMAL [None]
  - POLYNEUROPATHY [None]
